FAERS Safety Report 6524015-2 (Version None)
Quarter: 2009Q4

REPORT INFORMATION
  Report Type: 
  Country: None (occurrence: None)
  Receive Date: 20091230
  Receipt Date: 20091230
  Transmission Date: 20100525
  Serious: Yes (Death)
  Sender: FDA-Public Use
  Company Number: None

PATIENT
  Age: 53 Year
  Sex: Female
  Weight: 71.4 kg

DRUGS (1)
  1. FLUDARABINE PHOSPHATE [Suspect]

REACTIONS (12)
  - ACUTE RESPIRATORY DISTRESS SYNDROME [None]
  - CREPITATIONS [None]
  - DIALYSIS [None]
  - DYSPNOEA [None]
  - FLUID OVERLOAD [None]
  - GENERAL PHYSICAL HEALTH DETERIORATION [None]
  - INFECTION [None]
  - PULMONARY HAEMORRHAGE [None]
  - RENAL FAILURE [None]
  - STEM CELL TRANSPLANT [None]
  - TRAUMATIC LUNG INJURY [None]
  - VENOUS PRESSURE JUGULAR INCREASED [None]
